FAERS Safety Report 21327800 (Version 1)
Quarter: 2022Q3

REPORT INFORMATION
  Report Type: Spontaneous
  Country: US (occurrence: US)
  Receive Date: 20220913
  Receipt Date: 20220913
  Transmission Date: 20221027
  Serious: Yes (Other)
  Sender: FDA-Public Use
  Company Number: US-BAXTER-2022BAX019359

PATIENT
  Age: 69 Year
  Sex: Female

DRUGS (10)
  1. CYCLOPHOSPHAMIDE [Suspect]
     Active Substance: CYCLOPHOSPHAMIDE
     Indication: Mucous membrane pemphigoid
     Dosage: 2 MG/KG DAILY
     Route: 065
     Dates: start: 201809, end: 202002
  2. CYCLOPHOSPHAMIDE [Suspect]
     Active Substance: CYCLOPHOSPHAMIDE
     Dosage: 0.5 MG/KG DAILY
     Route: 065
  3. PREDNISONE [Concomitant]
     Active Substance: PREDNISONE
     Indication: Mucous membrane pemphigoid
     Dosage: 20 MG DAILY FOR 10 MONTHS
     Route: 065
     Dates: end: 2022
  4. METHOTREXATE [Concomitant]
     Active Substance: METHOTREXATE
     Indication: Mucous membrane pemphigoid
     Dosage: 15 MG WEEKLY FOR 10 MONTHS
     Route: 065
     Dates: end: 201709
  5. IMMUNE GLOBULIN NOS [Concomitant]
     Active Substance: IMMUNE GLOBULIN NOS
     Indication: Mucous membrane pemphigoid
     Dosage: 2 G/KG MONTHLY
     Route: 042
     Dates: start: 201709
  6. RITUXIMAB [Concomitant]
     Active Substance: RITUXIMAB
     Indication: Mucous membrane pemphigoid
     Dosage: 375 MG/M2 WEEKLY FOR 8 WEEKS, MONTHLY FOR 4 MONTHS, AND EVERY 4 MONTHS THEREAFTER
     Route: 065
     Dates: start: 201709
  7. ZOLEDRONIC ACID [Concomitant]
     Active Substance: ZOLEDRONIC ACID
     Indication: Spinal fracture
     Dosage: INFUSION
     Route: 042
     Dates: start: 201801
  8. VORICONAZOLE [Concomitant]
     Active Substance: VORICONAZOLE
     Indication: Keratitis fungal
     Dosage: UNK
     Route: 061
     Dates: start: 201801
  9. AMPHOTERICIN B [Concomitant]
     Active Substance: AMPHOTERICIN B
     Indication: Keratitis fungal
     Dosage: UNK
     Route: 065
     Dates: start: 201801
  10. MYCOPHENOLATE MOFETIL [Concomitant]
     Active Substance: MYCOPHENOLATE MOFETIL
     Indication: Mucous membrane pemphigoid
     Dosage: 1000 MG TWICE A DAY
     Route: 065
     Dates: start: 201805

REACTIONS (3)
  - Breast cancer recurrent [Recovered/Resolved]
  - Cytopenia [Unknown]
  - Diarrhoea [Unknown]

NARRATIVE: CASE EVENT DATE: 20190501
